FAERS Safety Report 5374356-X (Version None)
Quarter: 2007Q2

REPORT INFORMATION
  Report Type: 
  Country: None (occurrence: None)
  Receive Date: 20070629
  Receipt Date: 20070620
  Transmission Date: 20071010
  Serious: Yes (Other)
  Sender: FDA-Public Use
  Company Number: PHNU2007DE01021

PATIENT
  Age: 10 Year
  Sex: Male
  Weight: 35 kg

DRUGS (2)
  1. TRILEPTAL [Suspect]
     Indication: FRONTAL LOBE EPILEPSY
     Dosage: 225 MG/DAY
     Route: 048
     Dates: start: 20050301, end: 20070618
  2. TRILEPTAL [Suspect]
     Dosage: 150 MG/DAY
     Route: 048
     Dates: start: 20070619

REACTIONS (2)
  - HAIR COLOUR CHANGES [None]
  - PROGERIA [None]
